FAERS Safety Report 4403435-6 (Version None)
Quarter: 2004Q3

REPORT INFORMATION
  Report Type: 
  Country: None (occurrence: None)
  Receive Date: 20040720
  Receipt Date: 20040712
  Transmission Date: 20050211
  Serious: Yes (Other)
  Sender: FDA-Public Use
  Company Number: 200417584BWH

PATIENT
  Age: 58 Year
  Sex: Male
  Weight: 118.8424 kg

DRUGS (8)
  1. LEVITRA [Suspect]
     Dosage: 10 MG, TOTAL DAILY, ORAL
     Route: 048
     Dates: start: 20040410
  2. LISINOPRIL [Concomitant]
  3. COZAAR [Concomitant]
  4. VALTREX [Concomitant]
  5. PROTONIX [Concomitant]
  6. LIPITOR [Concomitant]
  7. ALLOPURINOL [Concomitant]
  8. K-TAB [Concomitant]

REACTIONS (6)
  - ANORGASMIA [None]
  - DISEASE RECURRENCE [None]
  - HAEMATOSPERMIA [None]
  - HERPES SIMPLEX [None]
  - OEDEMA [None]
  - WEIGHT INCREASED [None]
